FAERS Safety Report 13065486 (Version 2)
Quarter: 2017Q1

REPORT INFORMATION
  Report Type: Spontaneous
  Country: US (occurrence: US)
  Receive Date: 20161227
  Receipt Date: 20170307
  Transmission Date: 20170428
  Serious: Yes (Death, Hospitalization)
  Sender: FDA-Public Use
  Company Number: US-SA-2016SA218345

PATIENT
  Age: 56 Year
  Sex: Female
  Weight: 93 kg

DRUGS (36)
  1. COPAXONE [Concomitant]
     Active Substance: GLATIRAMER ACETATE
     Indication: MULTIPLE SCLEROSIS RELAPSE
  2. GAS-X [Concomitant]
     Active Substance: DIMETHICONE
  3. PREMARIN [Concomitant]
     Active Substance: ESTROGENS, CONJUGATED
  4. ZANAFLEX [Concomitant]
     Active Substance: TIZANIDINE HYDROCHLORIDE
  5. LANOXIN [Concomitant]
     Active Substance: DIGOXIN
  6. LASIX [Concomitant]
     Active Substance: FUROSEMIDE
  7. ALDACTONE [Concomitant]
     Active Substance: SPIRONOLACTONE
  8. MORPHINE [Concomitant]
     Active Substance: MORPHINE
  9. MELOXICAM. [Concomitant]
     Active Substance: MELOXICAM
  10. ASPIRIN. [Concomitant]
     Active Substance: ASPIRIN
  11. COPAXONE [Concomitant]
     Active Substance: GLATIRAMER ACETATE
     Indication: MULTIPLE SCLEROSIS RELAPSE
  12. ATORVASTATIN [Concomitant]
     Active Substance: ATORVASTATIN
  13. LISINOPRIL. [Concomitant]
     Active Substance: LISINOPRIL
  14. NORCO [Concomitant]
     Active Substance: ACETAMINOPHEN\HYDROCODONE BITARTRATE
  15. ASACOL [Concomitant]
     Active Substance: MESALAMINE
  16. KEPPRA [Concomitant]
     Active Substance: LEVETIRACETAM
  17. REBIF [Concomitant]
     Active Substance: INTERFERON BETA-1A
  18. COLLAGENASE SANTYL [Concomitant]
     Active Substance: COLLAGENASE CLOSTRIDIUM HISTOLYTICUM
  19. AUBAGIO [Suspect]
     Active Substance: TERIFLUNOMIDE
     Indication: MULTIPLE SCLEROSIS RELAPSE
     Route: 048
     Dates: start: 20160120, end: 20160216
  20. OXYBUTYNIN [Concomitant]
     Active Substance: OXYBUTYNIN
  21. AMITIZA [Concomitant]
     Active Substance: LUBIPROSTONE
  22. SYMMETREL [Concomitant]
     Active Substance: AMANTADINE HYDROCHLORIDE
  23. TOPAMAX [Concomitant]
     Active Substance: TOPIRAMATE
  24. COREG [Concomitant]
     Active Substance: CARVEDILOL
  25. TECFIDERA [Concomitant]
     Active Substance: DIMETHYL FUMARATE
     Indication: MULTIPLE SCLEROSIS RELAPSE
     Dates: end: 201601
  26. GABAPENTIN. [Concomitant]
     Active Substance: GABAPENTIN
  27. CARAFATE [Concomitant]
     Active Substance: SUCRALFATE
  28. PROTONIX [Concomitant]
     Active Substance: PANTOPRAZOLE SODIUM
  29. ZOLOFT [Concomitant]
     Active Substance: SERTRALINE HYDROCHLORIDE
  30. DOCUSATE SODIUM. [Concomitant]
     Active Substance: DOCUSATE SODIUM
  31. TRAVATAN Z [Concomitant]
     Active Substance: TRAVOPROST
     Dosage: OPHTHALMIC SOLUTION
  32. AVONEX [Concomitant]
     Active Substance: INTERFERON BETA-1A
  33. GARAMYCIN [Concomitant]
     Active Substance: GENTAMICIN SULFATE
     Route: 061
  34. WELCHOL [Concomitant]
     Active Substance: COLESEVELAM HYDROCHLORIDE
  35. BENADRYL [Concomitant]
     Active Substance: DIPHENHYDRAMINE HYDROCHLORIDE
  36. BENTYL [Concomitant]
     Active Substance: DICYCLOMINE HYDROCHLORIDE

REACTIONS (3)
  - Unevaluable event [Unknown]
  - Malaise [Unknown]
  - Cardiac failure [Fatal]

NARRATIVE: CASE EVENT DATE: 20161109
